FAERS Safety Report 18053739 (Version 1)
Quarter: 2020Q3

REPORT INFORMATION
  Report Type: Spontaneous
  Country: US (occurrence: US)
  Receive Date: 20200721
  Receipt Date: 20200721
  Transmission Date: 20201103
  Serious: Yes (Other)
  Sender: FDA-Public Use
  Company Number: None

PATIENT
  Age: 46 Year
  Sex: Female
  Weight: 92.25 kg

DRUGS (8)
  1. TEMAZEPAM. [Suspect]
     Active Substance: TEMAZEPAM
     Indication: INSOMNIA
     Dosage: ?          QUANTITY:30 CAPSULE(S);?
     Route: 048
     Dates: start: 20200714, end: 20200719
  2. DULOXETINE. [Concomitant]
     Active Substance: DULOXETINE
  3. JOINT HEALTH SUPPLEMENT [Concomitant]
  4. OXYBUTYNIN. [Concomitant]
     Active Substance: OXYBUTYNIN CHLORIDE
  5. VITAMIN D3 [Concomitant]
     Active Substance: CHOLECALCIFEROL
  6. CPAP MACHINE [Concomitant]
  7. VIIBRYD [Concomitant]
     Active Substance: VILAZODONE HYDROCHLORIDE
  8. MULTIVITIMIN [Concomitant]
     Active Substance: VITAMINS

REACTIONS (9)
  - Headache [None]
  - Dizziness [None]
  - Fatigue [None]
  - Confusional state [None]
  - Hyperhidrosis [None]
  - Depression [None]
  - Asthenia [None]
  - Abdominal discomfort [None]
  - Feeling hot [None]

NARRATIVE: CASE EVENT DATE: 20200719
